FAERS Safety Report 24924337 (Version 1)
Quarter: 2025Q1

REPORT INFORMATION
  Report Type: Spontaneous
  Country: US (occurrence: US)
  Receive Date: 20250204
  Receipt Date: 20250204
  Transmission Date: 20250409
  Serious: Yes (Other)
  Sender: BAUSCH AND LOMB
  Company Number: US-BAUSCHBL-2025BNL001592

PATIENT
  Sex: Female

DRUGS (1)
  1. LATANOPROST [Suspect]
     Active Substance: LATANOPROST
     Indication: Glaucoma
     Dosage: 1 DROP DAILY
     Route: 047

REACTIONS (4)
  - Loss of consciousness [Recovered/Resolved]
  - Vertigo [Unknown]
  - Nausea [Unknown]
  - Vomiting [Unknown]
